FAERS Safety Report 5026225-2 (Version None)
Quarter: 2006Q2

REPORT INFORMATION
  Report Type: 
  Country: None (occurrence: None)
  Receive Date: 20060608
  Receipt Date: 20060529
  Transmission Date: 20061013
  Serious: Yes (Other)
  Sender: FDA-Public Use
  Company Number: A-CH2005-10868

PATIENT
  Age: 67 Year
  Sex: Male

DRUGS (13)
  1. TRACLEER [Suspect]
     Indication: PULMONARY HYPERTENSION
     Dosage: SEE IMAGE
     Route: 048
     Dates: start: 20051018
  2. PROGRAF [Concomitant]
  3. SOLUPRED (PREDNISOLONE SODIUM SULFOBENZOATE) [Concomitant]
  4. ALLOPURINOL [Concomitant]
  5. SELOKEN (METOPROLOL) [Concomitant]
  6. PREVISCAN (FLUINDIONE) [Concomitant]
  7. ACTOMOL (MEBANAZINE) [Concomitant]
  8. NITRODERM [Concomitant]
  9. KETOCONAZOLE [Concomitant]
  10. LASIX [Concomitant]
  11. AMAREL (GLIMEPRIDIE) [Concomitant]
  12. ANTIBIOTICS [Concomitant]
  13. OMEPRAZOLE [Concomitant]

REACTIONS (1)
  - WHITE BLOOD CELL COUNT DECREASED [None]
